FAERS Safety Report 8681323 (Version 2)
Quarter: 2013Q4

REPORT INFORMATION
  Report Type: Spontaneous
  Country: US (occurrence: US)
  Receive Date: 20120725
  Receipt Date: 20131101
  Transmission Date: 20140711
  Serious: No
  Sender: FDA-Public Use
  Company Number: US-009507513-1207USA008419

PATIENT
  Age: 67 Year
  Sex: Male
  Weight: 71.66 kg

DRUGS (2)
  1. JANUMET [Suspect]
     Indication: DIABETES MELLITUS
     Dosage: 50000 U AT NIGHT AND 5500 U IN THE DAY
     Dates: start: 201111, end: 20120713
  2. BENICAR [Suspect]

REACTIONS (1)
  - Pruritus [Not Recovered/Not Resolved]
